FAERS Safety Report 11538858 (Version 2)
Quarter: 2016Q2

REPORT INFORMATION
  Report Type: Report from Study
  Country: US (occurrence: US)
  Receive Date: 20150923
  Receipt Date: 20160513
  Transmission Date: 20160815
  Serious: Yes (Other)
  Sender: FDA-Public Use
  Company Number: US-ROCHE-1629928

PATIENT
  Age: 66 Year
  Sex: Male
  Weight: 46.76 kg

DRUGS (4)
  1. ERIVEDGE [Suspect]
     Active Substance: VISMODEGIB
     Indication: BASAL CELL NAEVUS SYNDROME
     Dosage: ERIVEDGE FOR ABOUT 1.5 YEARS
     Route: 048
     Dates: start: 201401
  2. PAXIL (UNITED STATES) [Concomitant]
     Indication: DEPRESSION
  3. ERIVEDGE [Suspect]
     Active Substance: VISMODEGIB
     Indication: BASAL CELL CARCINOMA
  4. NEXIUM [Concomitant]
     Active Substance: ESOMEPRAZOLE MAGNESIUM
     Indication: GASTROOESOPHAGEAL REFLUX DISEASE

REACTIONS (7)
  - Alopecia [Unknown]
  - Weight decreased [Not Recovered/Not Resolved]
  - Dysphagia [Recovered/Resolved]
  - Ageusia [Recovered/Resolved]
  - Dysphagia [Recovered/Resolved]
  - Decreased appetite [Unknown]
  - Alopecia [Recovering/Resolving]

NARRATIVE: CASE EVENT DATE: 201406
